FAERS Safety Report 7980315-0 (Version None)
Quarter: 2011Q4

REPORT INFORMATION
  Report Type: 
  Country: None (occurrence: None)
  Receive Date: 20111214
  Receipt Date: 20111209
  Transmission Date: 20120403
  Serious: Yes (Death, Other)
  Sender: FDA-Public Use
  Company Number: PHHY2011SE108435

PATIENT
  Sex: Male

DRUGS (8)
  1. BEHEPAN [Concomitant]
     Dosage: 1 MG, UNK
  2. ACETAMINOPHEN [Concomitant]
     Dosage: 500 MG, UNK
  3. ZOPICLONE [Concomitant]
     Dosage: 7.5 MG, UNK
  4. KALCIPOS-D [Concomitant]
  5. METHOTREXATE [Suspect]
     Indication: RHEUMATOID ARTHRITIS
     Dosage: 15 MG, QW
     Route: 058
     Dates: start: 20110921, end: 20111027
  6. DAKTACORT [Concomitant]
  7. LAKTULOSE [Concomitant]
     Route: 048
  8. FOLIC ACID [Concomitant]
     Dosage: 5 MG, UNK

REACTIONS (6)
  - DEATH [None]
  - NEUTROPENIC SEPSIS [None]
  - ATELECTASIS [None]
  - PANCYTOPENIA [None]
  - CIRCULATORY COLLAPSE [None]
  - PNEUMONIA [None]
